FAERS Safety Report 6581347-X (Version None)
Quarter: 2010Q1

REPORT INFORMATION
  Report Type: 
  Country: None (occurrence: None)
  Receive Date: 20100215
  Receipt Date: 20100202
  Transmission Date: 20100710
  Serious: Yes (Other)
  Sender: FDA-Public Use
  Company Number: US-JNJFOC-20100100626

PATIENT
  Sex: Female
  Weight: 158.76 kg

DRUGS (2)
  1. TYLENOL ARTHRITIS PAIN ER [Suspect]
  2. TYLENOL ARTHRITIS PAIN ER [Suspect]
     Indication: MUSCULOSKELETAL PAIN

REACTIONS (7)
  - ABDOMINAL PAIN UPPER [None]
  - BLOOD URINE PRESENT [None]
  - DIARRHOEA [None]
  - INAPPROPRIATE SCHEDULE OF DRUG ADMINISTRATION [None]
  - NAUSEA [None]
  - PRODUCT QUALITY ISSUE [None]
  - PYREXIA [None]
